FAERS Safety Report 10439660 (Version 1)
Quarter: 2014Q3

REPORT INFORMATION
  Report Type: Spontaneous
  Country: DE (occurrence: DE)
  Receive Date: 20140908
  Receipt Date: 20140908
  Transmission Date: 20150326
  Serious: Yes (Other)
  Sender: FDA-Public Use
  Company Number: DE-PFIZER INC-2014244071

PATIENT
  Sex: Female

DRUGS (1)
  1. SORTIS [Suspect]
     Active Substance: ATORVASTATIN
     Dosage: UNK

REACTIONS (2)
  - Muscle spasms [Unknown]
  - Macular degeneration [Unknown]
